FAERS Safety Report 4590483-9 (Version None)
Quarter: 2005Q1

REPORT INFORMATION
  Report Type: 
  Country: None (occurrence: None)
  Receive Date: 20050217
  Receipt Date: 20050203
  Transmission Date: 20050727
  Serious: Yes (Other)
  Sender: FDA-Public Use
  Company Number: 2005025729

PATIENT
  Age: 83 Year
  Sex: Male
  Weight: 76.2043 kg

DRUGS (18)
  1. CELEBREX [Suspect]
     Indication: RHEUMATOID ARTHRITIS
     Dosage: 200 MG (200 MG, 1 IN 1 D), ORAL
     Route: 048
  2. EZETIMIBE (EZETIMIBE) [Concomitant]
  3. FINASTERIDE [Concomitant]
  4. GLIBOMET (GLIBENCLAMIDE, METFORMIN HYDROCHLORIDE) [Concomitant]
  5. METOPROLOL TARTRATE [Concomitant]
  6. RABEPRAZOLE SODIUM [Concomitant]
  7. ALPRAZOLAM [Concomitant]
  8. SILDENAFIL CITRATE (SILDENAFIL CITRATE) [Concomitant]
  9. SERENOA REPENS (SERENOA REPENS) [Concomitant]
  10. METHYLCELLULOSE (METHYLCELLULOSE) [Concomitant]
  11. MACROGOL (MACROGOL) [Concomitant]
  12. MULTIVITAMINS AND MINERAL SUPPLEMENT (MINERALS NOS, VITAMINS NOS) [Concomitant]
  13. ASCORBIC ACID/COPPER/TOCOPHEROL/ZINC (ASCORBIC ACID, COPPER, TOCOPHERO [Concomitant]
  14. OSTEO BI-FLEX (CHONDROITIN SULFATE, GLUCOSAMINE HYDROCHLORIDE) [Concomitant]
  15. FOLIC ACID [Concomitant]
  16. UBIDECARENONE (UBIDECARENONE) [Concomitant]
  17. FISH OIL (FISH OIL) [Concomitant]
  18. IRON (IRON) [Concomitant]

REACTIONS (4)
  - ARTHRALGIA [None]
  - ASTHENIA [None]
  - PAIN [None]
  - SPINAL COLUMN STENOSIS [None]
